FAERS Safety Report 7242836-8 (Version None)
Quarter: 2011Q1

REPORT INFORMATION
  Report Type: 
  Country: None (occurrence: None)
  Receive Date: 20110125
  Receipt Date: 20110118
  Transmission Date: 20110831
  Serious: Yes (Death, Other)
  Sender: FDA-Public Use
  Company Number: PHHY2011GR04071

PATIENT
  Age: 10 Year
  Sex: Female

DRUGS (5)
  1. ETOPOSIDE [Suspect]
     Indication: BRAIN NEOPLASM
     Dosage: 100 MG/M2
  2. TEMOZOLOMIDE [Suspect]
     Indication: BRAIN NEOPLASM
     Dosage: 100-180 MG/M2/DAY FOR 5 DAYS
  3. TEMOZOLOMIDE [Suspect]
     Dosage: 150 MG/M2 FOR FIVE DAYS
     Dates: end: 20081201
  4. RADIOTHERAPY [Suspect]
     Indication: BRAIN NEOPLASM
  5. LOMUSTINE [Suspect]
     Indication: BRAIN NEOPLASM
     Dosage: 80 MG/M2

REACTIONS (8)
  - NEOPLASM RECURRENCE [None]
  - HAEMATOCRIT DECREASED [None]
  - ACUTE MYELOID LEUKAEMIA [None]
  - HAEMOGLOBIN DECREASED [None]
  - TOXICITY TO VARIOUS AGENTS [None]
  - MYOCARDIAL INFARCTION [None]
  - BONE MARROW TOXICITY [None]
  - PLATELET COUNT DECREASED [None]
